FAERS Safety Report 10009789 (Version 1)
Quarter: 2014Q1

REPORT INFORMATION
  Report Type: Spontaneous
  Country: US (occurrence: US)
  Receive Date: 20140312
  Receipt Date: 20140312
  Transmission Date: 20141002
  Serious: No
  Sender: FDA-Public Use
  Company Number: US-INCYTE CORPORATION-2013IN000082

PATIENT
  Age: 70 Year
  Sex: Male

DRUGS (7)
  1. JAKAFI [Suspect]
     Dosage: TWO 5 MG TABLETS, BID
     Route: 048
     Dates: start: 2012
  2. JAKAFI [Suspect]
     Dosage: 5 MG, BID
     Route: 048
  3. ZOCOR [Concomitant]
     Dosage: 5 MG, UNK
  4. CELEBREX [Concomitant]
     Dosage: 50 MG, UNK
  5. PREDNISONE [Concomitant]
     Dosage: 1 MG, UNK
  6. FOLIC ACID [Concomitant]
     Dosage: 1 MG, UNK
  7. TOPROL XL [Concomitant]
     Dosage: 25 MG, UNK

REACTIONS (3)
  - Night sweats [Unknown]
  - Pain in extremity [Unknown]
  - Blood count abnormal [Unknown]
